FAERS Safety Report 19425660 (Version 3)
Quarter: 2022Q1

REPORT INFORMATION
  Report Type: Spontaneous
  Country: PL (occurrence: PL)
  Receive Date: 20210617
  Receipt Date: 20220203
  Transmission Date: 20220423
  Serious: Yes (Hospitalization, Other)
  Sender: FDA-Public Use
  Company Number: PL-EMA-DD-20210601-BANAVALLI_M-133850

PATIENT
  Age: 49 Year
  Sex: Male

DRUGS (16)
  1. RAMIPRIL [Suspect]
     Active Substance: RAMIPRIL
     Indication: Product used for unknown indication
     Dosage: 5 MILLIGRAM, DAILY, IN THE EVENING
     Route: 065
  2. RAMIPRIL [Suspect]
     Active Substance: RAMIPRIL
     Dosage: 1 DOSAGE FORM, DAILY, 1 DF QD
     Route: 065
  3. ROSUVASTATIN [Suspect]
     Active Substance: ROSUVASTATIN
     Indication: Product used for unknown indication
     Dosage: 30 MILLIGRAM, DAILY, 1 DF
     Route: 065
  4. EZETIMIBE [Suspect]
     Active Substance: EZETIMIBE
     Indication: Product used for unknown indication
     Dosage: 10 MILLIGRAM, 10 MG AT NIGHT
     Route: 065
  5. CARVEDILOL [Suspect]
     Active Substance: CARVEDILOL
     Indication: Product used for unknown indication
     Dosage: 25 MG, BID
     Route: 065
  6. CARVEDILOL [Suspect]
     Active Substance: CARVEDILOL
     Dosage: 50 MILLIGRAM, DAILY, 25 MG, BID (2X1 TABLETS/MORNING AND EVENING)
     Route: 065
  7. OMEGA-3 FATTY ACIDS [Suspect]
     Active Substance: OMEGA-3 FATTY ACIDS
     Indication: Product used for unknown indication
     Dosage: UNK (DOSE TEXT: 2 TABLET) ()
     Route: 065
  8. FENOFIBRATE [Suspect]
     Active Substance: FENOFIBRATE
     Indication: Product used for unknown indication
     Dosage: 25 MILLIGRAM, DAILY
     Route: 065
  9. FENOFIBRATE [Suspect]
     Active Substance: FENOFIBRATE
     Dosage: 125 MILLIGRAM, DAILY, 125 MG (1X 1 TABLET/MORNING)
     Route: 065
  10. TRIMETAZIDINE [Suspect]
     Active Substance: TRIMETAZIDINE
     Indication: Product used for unknown indication
     Dosage: 2 DF, BID
     Route: 065
  11. TRIMETAZIDINE [Suspect]
     Active Substance: TRIMETAZIDINE
     Dosage: 35 MILLIGRAM, 35 MG (2X 1 TABLET/MORNING AND EVENING)
     Route: 065
  12. EPLERENONE [Suspect]
     Active Substance: EPLERENONE
     Indication: Product used for unknown indication
     Dosage: 25 MILLIGRAM, 0.5 DF (25 MG(1 TABLET/HALF)
     Route: 065
  13. EPLERENONE [Suspect]
     Active Substance: EPLERENONE
     Dosage: 0.5 DOSAGE FORM, 0.5 DF (25 MG(1 TABLET/HALF)
     Route: 065
  14. ENTRESTO [Suspect]
     Active Substance: SACUBITRIL\VALSARTAN
     Indication: Product used for unknown indication
     Dosage: UNK, BID, 49/51 MG TWO TIMES A DAY, EVERY 12 HOURS ()
     Route: 065
     Dates: start: 20190910
  15. BISOPROLOL [Suspect]
     Active Substance: BISOPROLOL
     Indication: Product used for unknown indication
     Dosage: 5 MILLIGRAM, DAILY, 5 MG, QD
     Route: 065
  16. ASPIRIN [Suspect]
     Active Substance: ASPIRIN
     Indication: Product used for unknown indication
     Dosage: 75 MILLIGRAM, 75 MG
     Route: 065

REACTIONS (6)
  - Electrocardiogram abnormal [Unknown]
  - General physical health deterioration [Unknown]
  - Fatigue [Unknown]
  - Rales [Unknown]
  - Dyspnoea [Unknown]
  - Rales [Unknown]
